FAERS Safety Report 9518005 (Version 2)
Quarter: 2013Q3

REPORT INFORMATION
  Report Type: Spontaneous
  Country: US (occurrence: US)
  Receive Date: 20130912
  Receipt Date: 20130927
  Transmission Date: 20140515
  Serious: No
  Sender: FDA-Public Use
  Company Number: US-PFIZER INC-2013258362

PATIENT
  Age: 67 Year
  Sex: Female

DRUGS (1)
  1. XALKORI [Suspect]
     Indication: LUNG NEOPLASM MALIGNANT
     Dosage: 250 MG, 2X/DAY (ONE CAPSULE) TWO TIMES A DAY
     Dates: start: 201306

REACTIONS (3)
  - Vitreous floaters [Unknown]
  - Diarrhoea [Unknown]
  - Local swelling [Unknown]
